FAERS Safety Report 5236116-X (Version None)
Quarter: 2007Q1

REPORT INFORMATION
  Report Type: 
  Country: None (occurrence: None)
  Receive Date: 20061208
  Receipt Date: 20060425
  Transmission Date: 20070707
  Serious: Yes (Other)
  Sender: FDA-Public Use
  Company Number: 2006UW07428

PATIENT
  Age: 65 Year
  Sex: Female
  Weight: 58.512 kg

DRUGS (4)
  1. CRESTOR [Suspect]
     Indication: HYPERCHOLESTEROLAEMIA
     Dosage: 10 MG QD PO
     Route: 048
     Dates: start: 20051201
  2. CRESTOR [Suspect]
     Indication: HYPERCHOLESTEROLAEMIA
     Dosage: 20 MG QD PO
     Route: 048
     Dates: start: 20060206
  3. PLAVIX [Concomitant]
  4. LISINOPRIL [Concomitant]

REACTIONS (1)
  - LOW DENSITY LIPOPROTEIN INCREASED [None]
